FAERS Safety Report 7034348-1 (Version None)
Quarter: 2010Q4

REPORT INFORMATION
  Report Type: 
  Country: None (occurrence: None)
  Receive Date: 20101008
  Receipt Date: 20100924
  Transmission Date: 20110411
  Serious: Yes (Hospitalization)
  Sender: FDA-Public Use
  Company Number: PHHO2010FR14626

PATIENT
  Sex: Male

DRUGS (8)
  1. STI571/CGP57148B T35717+TAB [Suspect]
     Indication: ACUTE LYMPHOCYTIC LEUKAEMIA
     Dosage: 400 MG, BID
     Route: 048
     Dates: start: 20091015
  2. ARACYTINE [Suspect]
     Dosage: 6000 MG, BID
     Route: 042
     Dates: start: 20091120, end: 20091121
  3. METHOTREXATE [Suspect]
     Dosage: 2000 MG
     Route: 042
     Dates: start: 20091119, end: 20091119
  4. NEXIUM [Concomitant]
  5. IMOVANE [Concomitant]
  6. VINCRISTINE [Concomitant]
  7. DEXAMETHASONE [Concomitant]
  8. DEPO-MEDROL [Concomitant]

REACTIONS (4)
  - BONE MARROW FAILURE [None]
  - DECREASED APPETITE [None]
  - HYPERTHERMIA [None]
  - STAPHYLOCOCCUS TEST POSITIVE [None]
